FAERS Safety Report 14857194 (Version 10)
Quarter: 2019Q4

REPORT INFORMATION
  Report Type: Spontaneous
  Country: FR (occurrence: FR)
  Receive Date: 20180508
  Receipt Date: 20191204
  Transmission Date: 20200122
  Serious: Yes (Other)
  Sender: FDA-Public Use
  Company Number: FR-AMGEN-FRASP2018059666

PATIENT
  Age: 64 Year
  Sex: Female
  Weight: 58 kg

DRUGS (3)
  1. PROLIA [Suspect]
     Active Substance: DENOSUMAB
     Indication: OSTEOPOROSIS
     Dosage: 60 MILLIGRAM, Q6MO
     Route: 058
     Dates: start: 20140514, end: 20170630
  2. CALCIUM [Concomitant]
     Active Substance: CALCIUM
     Dosage: 750 MILLIGRAM, QD
  3. UVEDOSE [Concomitant]
     Active Substance: CHOLECALCIFEROL

REACTIONS (4)
  - Spinal compression fracture [Recovering/Resolving]
  - Spinal cord compression [Recovered/Resolved]
  - Fatigue [Recovered/Resolved]
  - Periarthritis [Unknown]

NARRATIVE: CASE EVENT DATE: 20171015
